FAERS Safety Report 6117129-2 (Version None)
Quarter: 2009Q1

REPORT INFORMATION
  Report Type: 
  Country: None (occurrence: None)
  Receive Date: 20090314
  Receipt Date: 20090106
  Transmission Date: 20090719
  Serious: No
  Sender: FDA-Public Use
  Company Number: US-ABBOTT-09P-163-0496176-00

PATIENT
  Sex: Female
  Weight: 90.8 kg

DRUGS (6)
  1. HUMIRA [Suspect]
     Indication: RHEUMATOID ARTHRITIS
     Route: 058
     Dates: start: 20081001
  2. DICYCLOMINE [Concomitant]
     Indication: COLITIS ULCERATIVE
     Route: 048
  3. PROMETHAZINE [Concomitant]
     Indication: NAUSEA
     Dosage: EVERY SIX HOURS
  4. PROMETHAZINE [Concomitant]
     Indication: VOMITING
  5. MS CONTIN [Concomitant]
     Indication: PAIN
     Route: 048
  6. MORPHINE SULFATE [Concomitant]
     Indication: BREAKTHROUGH PAIN
     Route: 048

REACTIONS (2)
  - FATIGUE [None]
  - PAIN [None]
